FAERS Safety Report 6189725-8 (Version None)
Quarter: 2009Q2

REPORT INFORMATION
  Report Type: 
  Country: None (occurrence: None)
  Receive Date: 20090514
  Receipt Date: 20090506
  Transmission Date: 20091009
  Serious: Yes (Other)
  Sender: FDA-Public Use
  Company Number: US-ROCHE-608865

PATIENT
  Sex: Female
  Weight: 41.3 kg

DRUGS (3)
  1. BONIVA [Suspect]
     Indication: OSTEOPOROSIS
     Route: 048
     Dates: start: 20080822, end: 20090104
  2. NAPROXEN SODIUM [Suspect]
     Indication: DRUG USE FOR UNKNOWN INDICATION
     Route: 065
  3. CALCIUM [Concomitant]

REACTIONS (3)
  - PAIN IN EXTREMITY [None]
  - PERIARTHRITIS [None]
  - SOMNOLENCE [None]
